FAERS Safety Report 14687858 (Version 1)
Quarter: 2018Q1

REPORT INFORMATION
  Report Type: Spontaneous
  Country: US (occurrence: US)
  Receive Date: 20180328
  Receipt Date: 20180328
  Transmission Date: 20180509
  Serious: Yes (Hospitalization, Other)
  Sender: FDA-Public Use
  Company Number: US-ABBVIE-18P-163-2300329-00

PATIENT
  Age: 80 Year
  Sex: Male

DRUGS (4)
  1. LASIX [Suspect]
     Active Substance: FUROSEMIDE
     Dosage: SMALLER DOSE
     Route: 065
     Dates: start: 201801
  2. LISINOPRIL. [Suspect]
     Active Substance: LISINOPRIL
     Indication: HYPERTENSION
     Route: 065
     Dates: end: 201801
  3. SYNTHROID [Suspect]
     Active Substance: LEVOTHYROXINE SODIUM
     Indication: HYPOTHYROIDISM
     Route: 048
     Dates: start: 201801
  4. LASIX [Suspect]
     Active Substance: FUROSEMIDE
     Indication: HYPERTENSION
     Route: 065
     Dates: end: 201801

REACTIONS (5)
  - Pulmonary oedema [Recovered/Resolved]
  - Blood potassium increased [Recovered/Resolved]
  - Renal disorder [Recovered/Resolved]
  - Fall [Recovered/Resolved]
  - Dyspnoea [Not Recovered/Not Resolved]

NARRATIVE: CASE EVENT DATE: 201801
